FAERS Safety Report 7387540-0 (Version None)
Quarter: 2011Q1

REPORT INFORMATION
  Report Type: 
  Country: None (occurrence: None)
  Receive Date: 20110331
  Receipt Date: 20110329
  Transmission Date: 20110831
  Serious: Yes (Death, Other)
  Sender: FDA-Public Use
  Company Number: GB-PFIZER INC-2011019502

PATIENT
  Age: 82 Year
  Sex: Female

DRUGS (8)
  1. TAZOCIN [Suspect]
     Indication: LOWER RESPIRATORY TRACT INFECTION
     Dosage: 4.5 G, UNK
     Route: 042
     Dates: start: 20110119
  2. MORPHINE SULFATE [Concomitant]
  3. PARACETAMOL [Concomitant]
  4. RANITIDINE [Concomitant]
  5. ENOXAPARIN [Concomitant]
  6. ADDITRACE [Concomitant]
  7. DICLOFENAC [Concomitant]
  8. SIMVASTATIN [Concomitant]

REACTIONS (2)
  - PULSELESS ELECTRICAL ACTIVITY [None]
  - CARDIAC ARREST [None]
